FAERS Safety Report 5364741-4 (Version None)
Quarter: 2007Q2

REPORT INFORMATION
  Report Type: 
  Country: None (occurrence: None)
  Receive Date: 20070530
  Receipt Date: 20070305
  Transmission Date: 20071010
  Serious: No
  Sender: FDA-Public Use
  Company Number: 2006PV009133

PATIENT
  Age: 58 Year
  Sex: Female

DRUGS (3)
  1. BYETTA [Suspect]
     Indication: DIABETES MELLITUS NON-INSULIN-DEPENDENT
     Dosage: 5 MCG; BID; SC
     Route: 058
     Dates: start: 20060124
  2. GLUCOVANCE [Concomitant]
  3. ACTOS [Concomitant]

REACTIONS (4)
  - ALOPECIA [None]
  - BLOOD GLUCOSE INCREASED [None]
  - NAUSEA [None]
  - SOCIAL AVOIDANT BEHAVIOUR [None]
